FAERS Safety Report 17056447 (Version 1)
Quarter: 2019Q4

REPORT INFORMATION
  Report Type: Spontaneous
  Country: US (occurrence: US)
  Receive Date: 20191121
  Receipt Date: 20191121
  Transmission Date: 20200122
  Serious: Yes (Other)
  Sender: FDA-Public Use
  Company Number: US-AMGEN-USASP2019189451

PATIENT
  Age: 39 Year
  Sex: Female

DRUGS (2)
  1. BINIMETINIB [Concomitant]
     Active Substance: BINIMETINIB
     Indication: COLON CANCER METASTATIC
     Dosage: UNK
     Dates: start: 201503, end: 201505
  2. PANITUMUMAB [Suspect]
     Active Substance: PANITUMUMAB
     Indication: COLON CANCER METASTATIC
     Dosage: UNK (FOR 6 WEEKS)
     Route: 065
     Dates: start: 201503, end: 201505

REACTIONS (4)
  - Arthralgia [Unknown]
  - Bone disorder [Unknown]
  - Gene mutation [Unknown]
  - Soft tissue mass [Unknown]

NARRATIVE: CASE EVENT DATE: 2015
